FAERS Safety Report 5311580-6 (Version None)
Quarter: 2007Q1

REPORT INFORMATION
  Report Type: 
  Country: None (occurrence: None)
  Receive Date: 20070201
  Receipt Date: 20061215
  Transmission Date: 20070707
  Serious: No
  Sender: FDA-Public Use
  Company Number: 259345

PATIENT
  Age: 62 Year
  Sex: Female
  Weight: 67.6 kg

DRUGS (8)
  1. LEVEMIR [Suspect]
     Indication: DIABETES MELLITUS INSULIN-DEPENDENT
     Dosage: 12 IU, QD, SUBCUTANEOUS
     Route: 058
     Dates: start: 20061107
  2. METFORMIN HCL [Concomitant]
  3. ALTACE [Concomitant]
  4. COREG [Concomitant]
  5. LIPITOR [Concomitant]
  6. ZETIA [Concomitant]
  7. LOPID [Concomitant]
  8. ASPIRIN [Concomitant]

REACTIONS (1)
  - NAUSEA [None]
